FAERS Safety Report 25868094 (Version 2)
Quarter: 2025Q4

REPORT INFORMATION
  Report Type: Spontaneous
  Country: US (occurrence: US)
  Receive Date: 20251001
  Receipt Date: 20251027
  Transmission Date: 20260117
  Serious: Yes (Other)
  Sender: ABBVIE
  Company Number: US-ABBVIE-6481753

PATIENT
  Sex: Female

DRUGS (1)
  1. OZURDEX [Suspect]
     Active Substance: DEXAMETHASONE
     Indication: Cystoid macular oedema
     Dosage: TIME INTERVAL: AS NECESSARY
     Route: 050
     Dates: start: 202508, end: 202508

REACTIONS (4)
  - Visual impairment [Unknown]
  - Eye inflammation [Unknown]
  - Vision blurred [Unknown]
  - Visual acuity reduced [Not Recovered/Not Resolved]

NARRATIVE: CASE EVENT DATE: 20250101
